FAERS Safety Report 9225553 (Version 2)
Quarter: 2013Q2

REPORT INFORMATION
  Report Type: Report from Study
  Country: US (occurrence: US)
  Receive Date: 20130411
  Receipt Date: 20130510
  Transmission Date: 20140414
  Serious: Yes (Hospitalization)
  Sender: FDA-Public Use
  Company Number: US-ROCHE-1210889

PATIENT
  Age: 82 Year
  Sex: Male

DRUGS (2)
  1. ALTEPLASE [Suspect]
     Indication: PERIPHERAL ARTERIAL OCCLUSIVE DISEASE
     Dosage: 0.5 - 2.0 MG/H
     Route: 013
  2. HEPARIN [Suspect]
     Indication: PERIPHERAL ARTERIAL OCCLUSIVE DISEASE
     Dosage: 60 - 90 SEC OR 300 - 500 U/H.
     Route: 013

REACTIONS (1)
  - Femoral artery aneurysm [Unknown]
